FAERS Safety Report 12143038 (Version 1)
Quarter: 2016Q1

REPORT INFORMATION
  Report Type: Spontaneous
  Country: JP (occurrence: JP)
  Receive Date: 20160303
  Receipt Date: 20160303
  Transmission Date: 20160526
  Serious: Yes (Other)
  Sender: FDA-Public Use
  Company Number: JP-GILEAD-2016-0201011

PATIENT
  Age: 37 Year
  Sex: Male

DRUGS (6)
  1. TRUVADA [Suspect]
     Active Substance: EMTRICITABINE\TENOFOVIR DISOPROXIL FUMARATE
     Indication: HIV INFECTION
     Route: 048
  2. MITOMYCIN C [Concomitant]
     Active Substance: MITOMYCIN
     Dosage: 10 MG/M2, UNK
     Route: 040
  3. 5-FU [Concomitant]
     Active Substance: FLUOROURACIL
     Dosage: 800 MG/M2, UNK
     Route: 041
  4. MITOMYCIN C [Concomitant]
     Active Substance: MITOMYCIN
     Route: 040
  5. 5-FU [Concomitant]
     Active Substance: FLUOROURACIL
     Dosage: 1000 MG/M2, UNK
     Route: 041
  6. RALTEGRAVIR POTASSIUM [Concomitant]
     Active Substance: RALTEGRAVIR POTASSIUM
     Route: 048

REACTIONS (5)
  - Platelet count decreased [Unknown]
  - Anal squamous cell carcinoma [Recovering/Resolving]
  - White blood cell count decreased [Recovered/Resolved]
  - Radiation skin injury [Unknown]
  - Neutrophil count decreased [Recovered/Resolved]
